FAERS Safety Report 8176206-5 (Version None)
Quarter: 2012Q1

REPORT INFORMATION
  Report Type: 
  Country: None (occurrence: None)
  Receive Date: 20120301
  Receipt Date: 20111228
  Transmission Date: 20120608
  Serious: Yes (Other)
  Sender: FDA-Public Use
  Company Number: CA-JNJFOC-20120112567

PATIENT
  Sex: Male
  Weight: 77.5 kg

DRUGS (28)
  1. CLONAZEPAM [Concomitant]
     Route: 065
  2. PERINDOPRIL ERBUMINE [Concomitant]
     Route: 065
  3. FLUOXETINE [Concomitant]
     Route: 065
  4. ADVAIR DISKUS 100/50 [Concomitant]
     Route: 065
  5. MIRTAZAPINE [Concomitant]
     Route: 065
  6. SULFASALAZINE [Concomitant]
     Route: 065
  7. TAMSULOSIN HCL [Concomitant]
     Route: 065
  8. ABACAVIR SULFATE/LAMIVUDINE [Concomitant]
     Route: 065
  9. RALTEGRAVIR [Concomitant]
     Route: 065
  10. REMICADE [Suspect]
     Indication: ANKYLOSING SPONDYLITIS
     Route: 042
     Dates: start: 20111209
  11. ATIVAN [Concomitant]
     Route: 065
  12. MARINOL [Concomitant]
     Route: 065
  13. PANETS [Concomitant]
     Route: 065
  14. CALCIUM [Concomitant]
     Route: 065
  15. DIAMICRON [Concomitant]
     Route: 065
  16. DILAUDID [Concomitant]
     Route: 065
  17. POTASSIUM CHLORIDE [Concomitant]
     Route: 065
  18. ZOPICLONE [Concomitant]
     Route: 065
  19. LIPITOR [Concomitant]
     Route: 065
  20. METFORMIN HCL [Concomitant]
     Route: 065
  21. LEVOTHYROXINE SODIUM [Concomitant]
     Route: 065
  22. VITAMIN D [Concomitant]
     Route: 065
  23. REMICADE [Suspect]
     Dosage: 2ND LOADING DOSE
     Route: 042
     Dates: start: 20111228
  24. QUETIAPINE [Concomitant]
     Route: 065
  25. ALLOPURINOL [Concomitant]
     Route: 065
  26. LASIX [Concomitant]
     Route: 065
  27. GABAPENTIN [Concomitant]
     Route: 065
  28. OXAZEPAM [Concomitant]
     Route: 065

REACTIONS (7)
  - SWOLLEN TONGUE [None]
  - THROAT TIGHTNESS [None]
  - HYPERHIDROSIS [None]
  - FLUSHING [None]
  - INFUSION RELATED REACTION [None]
  - RETCHING [None]
  - NAUSEA [None]
